FAERS Safety Report 19826889 (Version 1)
Quarter: 2021Q3

REPORT INFORMATION
  Report Type: Spontaneous
  Country: FR (occurrence: FR)
  Receive Date: 20210913
  Receipt Date: 20210913
  Transmission Date: 20211014
  Serious: Yes (Other)
  Sender: FDA-Public Use
  Company Number: FR-MALLINCKRODT PHARMACEUTICALS-T202104115

PATIENT
  Age: 26 Year
  Sex: Female

DRUGS (7)
  1. OFIRMEV [Suspect]
     Active Substance: ACETAMINOPHEN
     Dosage: UNK
     Route: 042
  2. TRAMADOL. [Suspect]
     Active Substance: TRAMADOL
     Indication: ANALGESIC THERAPY
     Dosage: UNK
     Route: 042
  3. OFIRMEV [Suspect]
     Active Substance: ACETAMINOPHEN
     Dosage: UNK
     Route: 042
  4. NEFOPAM [Suspect]
     Active Substance: NEFOPAM
     Indication: ANALGESIC THERAPY
     Dosage: UNK
     Route: 042
  5. PHLOROGLUCINOL [Suspect]
     Active Substance: PHLOROGLUCINOL
     Indication: ANALGESIC THERAPY
     Dosage: UNK
     Route: 042
  6. OFIRMEV [Suspect]
     Active Substance: ACETAMINOPHEN
     Indication: ANALGESIC THERAPY
     Dosage: UNK
     Route: 042
  7. NICARDIPINE [Concomitant]
     Active Substance: NICARDIPINE
     Indication: PRODUCT USED FOR UNKNOWN INDICATION
     Dosage: UNK
     Route: 065

REACTIONS (1)
  - Porphyria [Recovered/Resolved]
